FAERS Safety Report 8553488-9 (Version None)
Quarter: 2012Q3

REPORT INFORMATION
  Report Type: 
  Country: None (occurrence: None)
  Receive Date: 20120731
  Receipt Date: 20120724
  Transmission Date: 20120928
  Serious: Yes (Other)
  Sender: FDA-Public Use
  Company Number: US-PFIZER INC-2012165694

PATIENT
  Sex: Male

DRUGS (4)
  1. VIAGRA [Interacting]
     Dosage: 25 MG, UNK
     Dates: start: 20120101
  2. VIAGRA [Interacting]
     Dosage: 100 MG, ONCE
     Dates: start: 20120701
  3. LORTAB [Interacting]
     Dosage: UNK
  4. VIAGRA [Suspect]
     Indication: ERECTILE DYSFUNCTION
     Dosage: 100 MG, AS NEEDED
     Route: 048
     Dates: start: 20120708

REACTIONS (3)
  - DRUG INEFFECTIVE [None]
  - BACK DISORDER [None]
  - DRUG INTERACTION [None]
